FAERS Safety Report 18485809 (Version 1)
Quarter: 2020Q4

REPORT INFORMATION
  Report Type: Spontaneous
  Country: DE (occurrence: DE)
  Receive Date: 20201110
  Receipt Date: 20201110
  Transmission Date: 20210114
  Serious: Yes (Hospitalization, Other)
  Sender: FDA-Public Use
  Company Number: DE-PFIZER INC-2020436822

PATIENT
  Age: 76 Year
  Sex: Female

DRUGS (9)
  1. TINZAPARIN [Suspect]
     Active Substance: TINZAPARIN
     Dosage: 3500 IU, 1X/DAY (1-0-0-0), AMPOULES
     Route: 058
  2. ACETYLSALICYLSAEURE [Concomitant]
     Active Substance: ASPIRIN
     Dosage: 100 MG, 1X/DAY (0-1-0-0)
     Route: 048
  3. TEBONIN KONZENT [Concomitant]
     Dosage: 240 MG, 1X/DAY (1-0-0-0)
     Route: 048
  4. METAMIZOLE [Concomitant]
     Active Substance: METAMIZOLE
     Dosage: 1 G, 4X/DAY (1-1-1-1)
     Route: 048
  5. METHOTREXATE SODIUM. [Suspect]
     Active Substance: METHOTREXATE SODIUM
     Dosage: 15 MG, WEEKLY (WEDNESDAYS), AMPOULES
     Route: 058
  6. COLECALCIFEROL [Concomitant]
     Active Substance: CHOLECALCIFEROL
     Dosage: 20000 IU, MONTHLY (1X PER MONTH)
     Route: 048
  7. ATORVASTATIN [Concomitant]
     Active Substance: ATORVASTATIN
     Dosage: 40 MG, 1X/DAY (0-0-1-0)
     Route: 048
  8. LEVOTHYROXINE SODIUM. [Concomitant]
     Active Substance: LEVOTHYROXINE SODIUM
     Dosage: 100 UG, 1X/DAY (1-0-0-0)
     Route: 048
  9. FOLSAEURE [Concomitant]
     Active Substance: FOLIC ACID
     Dosage: 5 MG, WEEKLY (THURSDAYS)
     Route: 048

REACTIONS (7)
  - Abdominal pain [Unknown]
  - Alanine aminotransferase increased [Unknown]
  - Nausea [Unknown]
  - Condition aggravated [Unknown]
  - Abdominal distension [Unknown]
  - Aspartate aminotransferase increased [Unknown]
  - Ulcer [Unknown]
